FAERS Safety Report 6449650-1 (Version None)
Quarter: 2009Q4

REPORT INFORMATION
  Report Type: 
  Country: None (occurrence: None)
  Receive Date: 20091120
  Receipt Date: 20091112
  Transmission Date: 20100525
  Serious: Yes (Other)
  Sender: FDA-Public Use
  Company Number: PHHY2009MX44130

PATIENT
  Sex: Female

DRUGS (5)
  1. STALEVO 100 [Suspect]
     Indication: PARKINSON'S DISEASE
     Dosage: 1.35 TABLET  (200/150 MG/37.5 MG) PER DAY
     Dates: start: 20060801
  2. BIPERIDEN HYDROCHLORIDE TAB [Concomitant]
     Indication: PARKINSON'S DISEASE
     Dosage: 0.5 TABLET
     Route: 048
  3. LEVOTHYROXINE SODIUM [Concomitant]
  4. RANITIDINE [Concomitant]
  5. PRAVASTATIN [Concomitant]
     Dosage: UNK

REACTIONS (2)
  - CEREBRAL INFARCTION [None]
  - DYSLALIA [None]
